FAERS Safety Report 9546567 (Version 1)
Quarter: 2013Q3

REPORT INFORMATION
  Report Type: Spontaneous
  Country: US (occurrence: US)
  Receive Date: 20130923
  Receipt Date: 20130923
  Transmission Date: 20140515
  Serious: Yes (Hospitalization)
  Sender: FDA-Public Use
  Company Number: US-MYLANLABS-2013S1020626

PATIENT
  Sex: Female

DRUGS (2)
  1. MERCAPTOPURINE [Suspect]
     Indication: COLITIS ULCERATIVE
     Route: 048
     Dates: start: 201308, end: 201309
  2. MERCAPTOPURINE [Suspect]
     Indication: OFF LABEL USE
     Route: 048
     Dates: start: 201308, end: 201309

REACTIONS (6)
  - White blood cell count decreased [Not Recovered/Not Resolved]
  - Dyspnoea [Not Recovered/Not Resolved]
  - Pyrexia [Not Recovered/Not Resolved]
  - Vomiting [Not Recovered/Not Resolved]
  - Weight decreased [Not Recovered/Not Resolved]
  - Malaise [Not Recovered/Not Resolved]
